FAERS Safety Report 4915139-1 (Version None)
Quarter: 2006Q1

REPORT INFORMATION
  Report Type: 
  Country: None (occurrence: None)
  Receive Date: 20060217
  Receipt Date: 20060207
  Transmission Date: 20060701
  Serious: Yes (Other)
  Sender: FDA-Public Use
  Company Number: 2006GB00234

PATIENT
  Age: 51 Year
  Sex: Female
  Weight: 75.1 kg

DRUGS (4)
  1. LISINOPRIL [Suspect]
     Indication: HYPERTENSION
     Route: 048
     Dates: start: 20050201, end: 20051001
  2. BENDROFLUAZIDE [Concomitant]
     Route: 048
  3. PULMICORT [Concomitant]
     Route: 055
  4. BRICANYL [Concomitant]
     Route: 065

REACTIONS (2)
  - CHOKING [None]
  - DYSPHAGIA [None]
